FAERS Safety Report 7137969-0 (Version None)
Quarter: 2010Q4

REPORT INFORMATION
  Report Type: 
  Country: None (occurrence: None)
  Receive Date: 20101118
  Receipt Date: 20101103
  Transmission Date: 20110411
  Serious: Yes (Life-Threatening, Hospitalization)
  Sender: FDA-Public Use
  Company Number: 2010PV000048

PATIENT
  Age: 8 Year
  Sex: Female

DRUGS (5)
  1. DEPOCYT [Suspect]
     Indication: ACUTE LYMPHOCYTIC LEUKAEMIA
     Dosage: 35 MG;4X;INTH
     Route: 037
     Dates: start: 20090109, end: 20090402
  2. PRECORTALON AQUOSUM [Concomitant]
  3. VINCRISTINE [Concomitant]
  4. METHOTREXATE [Concomitant]
  5. PEG-ASPARAGINASE [Concomitant]

REACTIONS (1)
  - CSF PRESSURE INCREASED [None]
